FAERS Safety Report 16141458 (Version 1)
Quarter: 2019Q2

REPORT INFORMATION
  Report Type: Spontaneous
  Country: IT (occurrence: IT)
  Receive Date: 20190401
  Receipt Date: 20190401
  Transmission Date: 20190711
  Serious: Yes (Death, Hospitalization)
  Sender: FDA-Public Use
  Company Number: IT-MYLANLABS-2019M1028594

PATIENT
  Age: 83 Year

DRUGS (4)
  1. BINOCRIT [Suspect]
     Active Substance: ERYTHROPOIETIN
     Indication: CHRONIC KIDNEY DISEASE
     Dosage: 5000 IU, EVERY 10 DAYS
     Route: 058
     Dates: start: 20160725
  2. BENADON [Concomitant]
     Active Substance: PYRIDOXINE HYDROCHLORIDE
     Indication: ANAEMIA
     Dosage: UNK
     Route: 065
  3. LORAZEPAM. [Suspect]
     Active Substance: LORAZEPAM
     Indication: PRODUCT USED FOR UNKNOWN INDICATION
     Dosage: UNK
     Route: 065
  4. FLUDROCORTISONE [Concomitant]
     Active Substance: FLUDROCORTISONE
     Indication: PRODUCT USED FOR UNKNOWN INDICATION
     Dosage: UNK
     Route: 065

REACTIONS (14)
  - Nervous system disorder [Fatal]
  - Somnolence [Fatal]
  - Depression [Fatal]
  - Hypovolaemia [Recovered/Resolved]
  - Extrapyramidal disorder [Fatal]
  - Hypotension [Recovered/Resolved]
  - Acute kidney injury [Recovered/Resolved]
  - Oesophageal stenosis [Fatal]
  - Dyspepsia [Fatal]
  - Asthenia [Recovering/Resolving]
  - Oesophageal achalasia [Fatal]
  - Muscle atrophy [Fatal]
  - General physical health deterioration [Fatal]
  - Mood swings [Fatal]

NARRATIVE: CASE EVENT DATE: 20180813
